FAERS Safety Report 6965864-6 (Version None)
Quarter: 2010Q3

REPORT INFORMATION
  Report Type: 
  Country: None (occurrence: None)
  Receive Date: 20100903
  Receipt Date: 20100827
  Transmission Date: 20110219
  Serious: Yes (Hospitalization, Other)
  Sender: FDA-Public Use
  Company Number: US-WYE-H01314507

PATIENT
  Sex: Female

DRUGS (3)
  1. PREMPRO [Suspect]
  2. PROVERA [Suspect]
  3. PREMARIN [Suspect]

REACTIONS (5)
  - CEREBROVASCULAR ACCIDENT [None]
  - HYPERTENSION [None]
  - MYOCARDIAL INFARCTION [None]
  - SLEEP APNOEA SYNDROME [None]
  - TRANSIENT ISCHAEMIC ATTACK [None]
